FAERS Safety Report 10726141 (Version 1)
Quarter: 2015Q1

REPORT INFORMATION
  Report Type: Spontaneous
  Country: PT (occurrence: None)
  Receive Date: 20150116
  Receipt Date: 20150116
  Transmission Date: 20150721
  Serious: No
  Sender: FDA-Public Use
  Company Number: PT-LHC-2015004

PATIENT
  Age: 81 Year
  Sex: Male

DRUGS (1)
  1. OXIGENIO MEDICINAL LINDE (OXYGEN) (GAS FOR INHALATION) (VERUM) [Suspect]
     Active Substance: OXYGEN
     Indication: PRODUCT USED FOR UNKNOWN INDICATION
     Route: 055
     Dates: start: 20140408

REACTIONS (2)
  - Frostbite [None]
  - Blister [None]

NARRATIVE: CASE EVENT DATE: 20141208
